FAERS Safety Report 6535473-1 (Version None)
Quarter: 2010Q1

REPORT INFORMATION
  Report Type: 
  Country: None (occurrence: None)
  Receive Date: 20100113
  Receipt Date: 20091222
  Transmission Date: 20100710
  Serious: Yes (Hospitalization)
  Sender: FDA-Public Use
  Company Number: US-ASTRAZENECA-2010SE00121

PATIENT
  Age: 79 Year
  Sex: Female

DRUGS (2)
  1. CUBICIN [Suspect]
     Indication: OSTEOMYELITIS
     Route: 042
  2. MERREM [Suspect]
     Route: 041

REACTIONS (2)
  - CHILLS [None]
  - TREMOR [None]
